FAERS Safety Report 8332790-X (Version None)
Quarter: 2012Q2

REPORT INFORMATION
  Report Type: 
  Country: None (occurrence: None)
  Receive Date: 20120503
  Receipt Date: 20120426
  Transmission Date: 20120825
  Serious: Yes (Hospitalization)
  Sender: FDA-Public Use
  Company Number: US-AMGEN-USASP2012026493

PATIENT
  Age: 84 Year
  Sex: Female

DRUGS (1)
  1. ENBREL [Suspect]
     Indication: RHEUMATOID ARTHRITIS
     Dosage: UNK
     Dates: start: 20110401

REACTIONS (9)
  - ARTHRITIS INFECTIVE [None]
  - FEELING HOT [None]
  - PAIN [None]
  - PYREXIA [None]
  - HYPOTENSION [None]
  - JOINT FLUID DRAINAGE [None]
  - JOINT SWELLING [None]
  - LABORATORY TEST ABNORMAL [None]
  - PNEUMONIA VIRAL [None]
